FAERS Safety Report 6085927-X (Version None)
Quarter: 2009Q1

REPORT INFORMATION
  Report Type: 
  Country: None (occurrence: None)
  Receive Date: 20090217
  Receipt Date: 20080221
  Transmission Date: 20090719
  Serious: Yes (Other)
  Sender: FDA-Public Use
  Company Number: MC200800101

PATIENT
  Age: 46 Year
  Sex: Male

DRUGS (3)
  1. ANGIOMAX [Suspect]
     Indication: PERCUTANEOUS CORONARY INTERVENTION
     Dosage: 11 ML, BOLUS, INTRAVENOUS : 26 ML, HR, INTRAVENOUS
     Route: 040
     Dates: start: 20080221, end: 20080221
  2. PLAVIX [Concomitant]
  3. ASPIRIN [Concomitant]

REACTIONS (2)
  - CATHETER THROMBOSIS [None]
  - COAGULATION TIME ABNORMAL [None]
